FAERS Safety Report 23573986 (Version 1)
Quarter: 2024Q1

REPORT INFORMATION
  Report Type: Spontaneous
  Country: IN (occurrence: IN)
  Receive Date: 20240228
  Receipt Date: 20240228
  Transmission Date: 20240410
  Serious: Yes (Other)
  Sender: FDA-Public Use
  Company Number: IN-AMGEN-INDSP2024036271

PATIENT
  Age: 6 Year
  Sex: Female

DRUGS (4)
  1. FILGRASTIM [Suspect]
     Active Substance: FILGRASTIM
     Indication: Acute lymphocytic leukaemia
     Dosage: 5 MICROMOLE PER KILOGRAM/DOSE FOR A TOTAL OF SIX DOSES FROM DAYS 1 TO 6
     Route: 058
  2. FLUDARABINE [Concomitant]
     Active Substance: FLUDARABINE PHOSPHATE
     Indication: Acute lymphocytic leukaemia
     Dosage: 30 MILLIGRAM/SQ. METER, QD, FROM DAYS 1 TO 5
     Route: 042
  3. BORTEZOMIB [Concomitant]
     Active Substance: BORTEZOMIB
     Indication: Acute lymphocytic leukaemia
     Dosage: 1.3 MILLIGRAM/SQ. METER, ON DAYS 1, 4, 8, AND 11
     Route: 058
  4. CYTARABINE [Concomitant]
     Active Substance: CYTARABINE
     Indication: Acute lymphocytic leukaemia
     Dosage: 2 GRAM PER SQUARE METRE, QD, DAILY FOR FOUR HOURS
     Route: 042

REACTIONS (1)
  - Febrile neutropenia [Unknown]
